FAERS Safety Report 5039557-9 (Version None)
Quarter: 2006Q2

REPORT INFORMATION
  Report Type: 
  Country: None (occurrence: None)
  Receive Date: 20060629
  Receipt Date: 20060609
  Transmission Date: 20061013
  Serious: Yes (Hospitalization)
  Sender: FDA-Public Use
  Company Number: US-BOEHRINGER INGELHEIM PHARMACEUTICALS, INC.-2006-BP-06659PF

PATIENT
  Sex: Female
  Weight: 113.5 kg

DRUGS (13)
  1. SPIRIVA [Suspect]
     Route: 055
  2. ADVAIR DISKUS 100/50 [Concomitant]
     Indication: CHRONIC OBSTRUCTIVE PULMONARY DISEASE
     Route: 055
     Dates: start: 20031002
  3. ACETAZOLAMIDE [Concomitant]
     Indication: OEDEMA
     Route: 048
     Dates: start: 20031002
  4. POTASSIUM CHLORIDE [Concomitant]
     Indication: MEDICAL DIET
     Route: 048
     Dates: start: 20031002
  5. GLUCOTROL XL [Concomitant]
     Indication: DIABETES MELLITUS
     Route: 048
     Dates: start: 20031112
  6. ASPIR-81 [Concomitant]
     Indication: CARDIOVASCULAR EVENT PROPHYLAXIS
     Route: 048
     Dates: start: 20031016
  7. LASIX [Concomitant]
     Indication: OEDEMA
     Route: 048
     Dates: start: 20031022
  8. ZOLOFT [Concomitant]
     Indication: DEPRESSION
     Route: 048
     Dates: start: 20050314
  9. GLUCOPHAGE [Concomitant]
     Indication: DIABETES MELLITUS
     Route: 048
     Dates: start: 20050314
  10. ALLEGRA [Concomitant]
     Indication: RHINITIS ALLERGIC
     Route: 048
     Dates: start: 20050401
  11. OXYGEN [Concomitant]
     Indication: CHRONIC OBSTRUCTIVE PULMONARY DISEASE
     Route: 055
     Dates: start: 20031002
  12. TYLENOL ES [Concomitant]
     Indication: HEADACHE
     Route: 048
     Dates: start: 20050909
  13. TYLENOL ES [Concomitant]
     Indication: BACK PAIN

REACTIONS (4)
  - CHEST DISCOMFORT [None]
  - CORONARY ARTERY DISEASE [None]
  - DYSPNOEA [None]
  - SCAN MYOCARDIAL PERFUSION ABNORMAL [None]
